FAERS Safety Report 19348271 (Version 1)
Quarter: 2021Q2

REPORT INFORMATION
  Report Type: Spontaneous
  Country: US (occurrence: US)
  Receive Date: 20210531
  Receipt Date: 20210531
  Transmission Date: 20210717
  Serious: Yes (Other)
  Sender: FDA-Public Use
  Company Number: US-PURDUE-USA-2020-0191701

PATIENT
  Sex: Female

DRUGS (1)
  1. OXYCONTIN [Suspect]
     Active Substance: OXYCODONE HYDROCHLORIDE
     Indication: ABDOMINAL PAIN LOWER
     Dosage: UNKNOWN
     Route: 048

REACTIONS (5)
  - Abdominal pain lower [Unknown]
  - Drug dependence [Unknown]
  - Constipation [Unknown]
  - Drug withdrawal syndrome [Unknown]
  - Scar [Unknown]
